FAERS Safety Report 18689319 (Version 3)
Quarter: 2021Q1

REPORT INFORMATION
  Report Type: Report from Study
  Country: BR (occurrence: BR)
  Receive Date: 20201231
  Receipt Date: 20210330
  Transmission Date: 20210419
  Serious: Yes (Hospitalization)
  Sender: FDA-Public Use
  Company Number: BR-TAKEDA-2020TUS059962

PATIENT
  Age: 31 Year
  Sex: Male
  Weight: 46 kg

DRUGS (1)
  1. VEDOLIZUMAB [Suspect]
     Active Substance: VEDOLIZUMAB
     Indication: CROHN^S DISEASE
     Dosage: 300 MILLIGRAM, Q8WEEKS
     Route: 042
     Dates: start: 20180831

REACTIONS (3)
  - Weight decreased [Unknown]
  - Rhinitis [Unknown]
  - Hospitalisation [Unknown]

NARRATIVE: CASE EVENT DATE: 20201218
